FAERS Safety Report 13034643 (Version 1)
Quarter: 2016Q4

REPORT INFORMATION
  Report Type: Spontaneous
  Country: US (occurrence: US)
  Receive Date: 20161216
  Receipt Date: 20161216
  Transmission Date: 20170207
  Serious: No
  Sender: FDA-Public Use
  Company Number: US-BAUSCH-BL-2016-019687

PATIENT
  Sex: Female

DRUGS (1)
  1. TIMOLOL GEL FORMING SOLUTION [Suspect]
     Active Substance: TIMOLOL
     Indication: PRODUCT USED FOR UNKNOWN INDICATION
     Dosage: 0.5 PERCENT /5ML
     Route: 047
     Dates: start: 2016

REACTIONS (3)
  - Eye irritation [Unknown]
  - Product container issue [Unknown]
  - Eye pain [Unknown]

NARRATIVE: CASE EVENT DATE: 2016
